FAERS Safety Report 9891282 (Version 2)
Quarter: 2014Q1

REPORT INFORMATION
  Report Type: Spontaneous
  Country: IE (occurrence: IE)
  Receive Date: 20140212
  Receipt Date: 20140303
  Transmission Date: 20141002
  Serious: Yes (Hospitalization)
  Sender: FDA-Public Use
  Company Number: IE-B.I. PHARMACEUTICALS,INC./RIDGEFIELD-2014-BI-05305UK

PATIENT
  Age: 81 Year
  Sex: Female

DRUGS (6)
  1. PRADAXA [Suspect]
     Indication: ATRIAL FIBRILLATION
     Dosage: 220 MG
     Route: 065
  2. BETALOC (METOPROLOL) [Concomitant]
     Dosage: 100 MG
     Route: 065
  3. PANTOPRAZOLE [Concomitant]
     Dosage: 40 MG
     Route: 065
  4. KONVERGE [Concomitant]
     Indication: HYPERTENSION
     Route: 065
  5. LATANOPROST 50MG/ML [Concomitant]
     Dosage: DOSE PER APPLICATION: 1 DROP EACH EYE
     Route: 065
  6. BRIMONIDINE/TIMOLOL [Concomitant]
     Dosage: DOSE PER APPLICATION: 2MG/5MG/1ML
     Route: 065

REACTIONS (1)
  - Cerebrovascular accident [Recovered/Resolved]
